FAERS Safety Report 15110251 (Version 1)
Quarter: 2018Q3

REPORT INFORMATION
  Report Type: Spontaneous
  Country: JP (occurrence: PK)
  Receive Date: 20180705
  Receipt Date: 20180705
  Transmission Date: 20181010
  Serious: Yes (Other)
  Sender: FDA-Public Use
  Company Number: PK-JACOBUS PHARMACEUTICAL COMPANY, INC.-2051457

PATIENT
  Age: 29 Year
  Sex: Female
  Weight: 47.09 kg

DRUGS (7)
  1. PASER [Suspect]
     Active Substance: AMINOSALICYLIC ACID
     Indication: TUBERCULOSIS
     Route: 048
  2. BEDAQUILINE [Suspect]
     Active Substance: BEDAQUILINE
  3. CAPREOMYCIN [Suspect]
     Active Substance: CAPREOMYCIN
  4. DELAMANID [Suspect]
     Active Substance: DELAMANID
     Dates: start: 20171130
  5. LINEZOLID. [Suspect]
     Active Substance: LINEZOLID
  6. MOXIFLOXACIN. [Suspect]
     Active Substance: MOXIFLOXACIN
     Route: 048
     Dates: start: 20170213
  7. CLOFAZIMINE [Suspect]
     Active Substance: CLOFAZIMINE
     Route: 048
     Dates: start: 20170213

REACTIONS (4)
  - Abdominal pain upper [Unknown]
  - Anaemia [Recovered/Resolved]
  - Visual impairment [Unknown]
  - Vomiting [Unknown]

NARRATIVE: CASE EVENT DATE: 20170613
